FAERS Safety Report 4716421-3 (Version None)
Quarter: 2005Q3

REPORT INFORMATION
  Report Type: 
  Country: None (occurrence: None)
  Receive Date: 20050719
  Receipt Date: 20041227
  Transmission Date: 20060218
  Serious: No
  Sender: FDA-Public Use
  Company Number: US-BRISTOL-MYERS SQUIBB COMPANY-12807491

PATIENT
  Sex: Female

DRUGS (1)
  1. PROLIXIN DECANOATE [Suspect]
     Indication: BIPOLAR DISORDER
     Route: 030
     Dates: start: 19900101

REACTIONS (3)
  - INSOMNIA [None]
  - MUSCULOSKELETAL DISCOMFORT [None]
  - RESTLESSNESS [None]
